FAERS Safety Report 8661284 (Version 3)
Quarter: 2012Q4

REPORT INFORMATION
  Report Type: 
  Country: JP (occurrence: JP)
  Receive Date: 20120626
  Receipt Date: 20121231
  Transmission Date: 20130627
  Serious: Yes (Hospitalization, Other)
  Sender: FDA-Public Use
  Company Number: JP-009507513-2012SP032707

PATIENT
  Age: 64 Year
  Sex: Male
  Weight: 73 kg

DRUGS (21)
  1. PEGINTRON [Suspect]
     Indication: CHRONIC HEPATITIS C
     Dosage: 1.5 Microgram per kilogram, qw
     Route: 058
     Dates: start: 20120215, end: 20120410
  2. PEGINTRON [Suspect]
     Dosage: 1.5 Microgram per kilogram, qw
     Route: 058
     Dates: start: 20120424
  3. REBETOL [Suspect]
     Indication: CHRONIC HEPATITIS C
     Dosage: 800 mg, qd
     Route: 048
     Dates: start: 20120215, end: 20120228
  4. REBETOL [Suspect]
     Dosage: 400 mg, qd
     Route: 048
     Dates: start: 20120229
  5. REBETOL [Suspect]
     Dosage: 200 mg, qd
     Route: 048
     Dates: start: 20120403
  6. REBETOL [Suspect]
     Dosage: 400 mg, qd
     Route: 048
     Dates: start: 20120515
  7. REBETOL [Suspect]
     Dosage: 600 mg, qd
     Route: 048
     Dates: start: 20120619
  8. REBETOL [Suspect]
     Dosage: 800 mg, qd
     Route: 048
     Dates: start: 20120626, end: 20120717
  9. TELAVIC [Suspect]
     Indication: CHRONIC HEPATITIS C
     Dosage: 2250 mg, daily, qd
     Route: 048
     Dates: start: 20120215, end: 20120416
  10. TELAVIC [Suspect]
     Dosage: 1500 mg, qd
     Route: 048
     Dates: start: 20120417
  11. VANCOMYCIN [Concomitant]
     Dosage: DRUG FORM : UNKNOWN
     Route: 042
     Dates: start: 20120423, end: 20120429
  12. LIVALO [Concomitant]
     Indication: HYPERLIPIDAEMIA
     Route: 048
  13. EPADEL S [Concomitant]
     Indication: HYPERLIPIDAEMIA
     Dosage: 1800 mg, Once
     Route: 048
  14. FEROTYM [Concomitant]
     Indication: IRON DEFICIENCY ANAEMIA
     Dosage: 100 mg once
     Route: 048
  15. FEROTYM [Concomitant]
     Route: 048
  16. MUCODYNE [Concomitant]
     Indication: ASTHMA
     Dosage: 750 mg once
     Route: 048
  17. CLARITIN REDITABS [Concomitant]
     Indication: PROPHYLAXIS
     Dosage: 10 mg once
     Route: 048
  18. NAUZELIN [Concomitant]
     Indication: NAUSEA
     Dosage: 10 mg once
     Route: 048
  19. PREDNISOLONE [Concomitant]
     Dosage: 5 mg,qd
     Route: 048
     Dates: start: 20120514, end: 20120611
  20. LASIX (FUROSEMIDE) [Suspect]
     Dosage: 20 mg, qd
     Route: 048
     Dates: end: 20120618
  21. LASIX (FUROSEMIDE) [Suspect]
     Dosage: 10 mg, qd
     Route: 048
     Dates: start: 20120619, end: 20120702

REACTIONS (7)
  - Rash [Not Recovered/Not Resolved]
  - Renal impairment [Not Recovered/Not Resolved]
  - Ascites [Recovered/Resolved]
  - Oedema due to hepatic disease [Recovered/Resolved]
  - Cellulitis [Recovered/Resolved]
  - Anaemia [Not Recovered/Not Resolved]
  - Staphylococcus test positive [None]
